FAERS Safety Report 4355107-4 (Version None)
Quarter: 2004Q2

REPORT INFORMATION
  Report Type: 
  Country: None (occurrence: None)
  Receive Date: 20040504
  Receipt Date: 20040416
  Transmission Date: 20050107
  Serious: Yes (Hospitalization)
  Sender: FDA-Public Use
  Company Number: 200411404GDS

PATIENT
  Age: 82 Year
  Sex: Male

DRUGS (5)
  1. ASPIRIN [Suspect]
     Indication: CARDIOVASCULAR DISORDER
     Dosage: 75 MG, TOTAL DAILY, ORAL
     Route: 048
     Dates: start: 19930101, end: 20030206
  2. ENALAPRIL MALEATE [Suspect]
     Indication: HYPERTENSION
     Dosage: ORAL
     Route: 048
     Dates: start: 19980626
  3. SIMVASTATIN [Concomitant]
  4. NIFEDIPINE LA [Concomitant]
  5. TOLBUTAMIDE [Concomitant]

REACTIONS (3)
  - DUODENAL ULCER [None]
  - HAEMATEMESIS [None]
  - HELICOBACTER INFECTION [None]
